FAERS Safety Report 12655732 (Version 3)
Quarter: 2017Q1

REPORT INFORMATION
  Report Type: Spontaneous
  Country: US (occurrence: US)
  Receive Date: 20160816
  Receipt Date: 20170203
  Transmission Date: 20170428
  Serious: Yes (Hospitalization, Other)
  Sender: FDA-Public Use
  Company Number: US-ELI_LILLY_AND_COMPANY-US201608003841

PATIENT
  Age: 60 Year
  Sex: Female
  Weight: 55.7 kg

DRUGS (5)
  1. COPAXONE [Concomitant]
     Active Substance: GLATIRAMER ACETATE
     Indication: MULTIPLE SCLEROSIS
  2. XANAX [Concomitant]
     Active Substance: ALPRAZOLAM
     Dosage: 1 DF, PRN
  3. TERIPARATIDE [Suspect]
     Active Substance: TERIPARATIDE
     Indication: OSTEOPOROSIS
     Dosage: UNK, UNKNOWN
     Route: 065
     Dates: start: 200801
  4. VIVELLE [Concomitant]
     Active Substance: ESTRADIOL
     Dosage: 2 DF, 2/W
     Route: 062
  5. ADVIL [Concomitant]
     Active Substance: IBUPROFEN
     Dosage: UNK, PRN
     Route: 048

REACTIONS (9)
  - Osteosarcoma [Unknown]
  - Bone lesion [Unknown]
  - Osteomalacia [Unknown]
  - Incision site cellulitis [Unknown]
  - Jaw fracture [Unknown]
  - Bone disorder [Unknown]
  - Traumatic lung injury [Unknown]
  - Hypoaesthesia oral [Unknown]
  - Numb chin syndrome [Unknown]

NARRATIVE: CASE EVENT DATE: 20150428
